FAERS Safety Report 15542031 (Version 3)
Quarter: 2019Q2

REPORT INFORMATION
  Report Type: Report from Study
  Country: FI (occurrence: FI)
  Receive Date: 20181023
  Receipt Date: 20190607
  Transmission Date: 20190711
  Serious: Yes (Death, Hospitalization, Other)
  Sender: FDA-Public Use
  Company Number: PHHY2018FI054844

PATIENT
  Age: 38 Year
  Sex: Female

DRUGS (11)
  1. LAPENAX [Suspect]
     Active Substance: CLOZAPINE
     Dosage: 75 MG, QD (THIRD TRIMESTER EXPOSURE)
     Route: 065
     Dates: start: 201807, end: 201807
  2. PERATSIN [Concomitant]
     Active Substance: PERPHENAZINE
     Dosage: 2 DF, BID
     Route: 065
  3. LAPENAX [Suspect]
     Active Substance: CLOZAPINE
     Dosage: 375 MG, UNK (THIRD TRIMESTER EXPOSURE)
     Route: 065
  4. VENLAFAXINE [Concomitant]
     Active Substance: VENLAFAXINE HYDROCHLORIDE
     Indication: PRODUCT USED FOR UNKNOWN INDICATION
     Dosage: 2 DF, BID
     Route: 065
  5. PERATSIN [Concomitant]
     Active Substance: PERPHENAZINE
     Indication: PRODUCT USED FOR UNKNOWN INDICATION
     Dosage: 2 DF, BID
     Route: 065
  6. VENLAFAXINE [Concomitant]
     Active Substance: VENLAFAXINE HYDROCHLORIDE
     Dosage: 2 DF, QD
  7. LAPENAX [Suspect]
     Active Substance: CLOZAPINE
     Indication: SCHIZOAFFECTIVE DISORDER
     Dosage: 1 DF (300-375 MG), QD (10 YEARS AGO)
     Route: 065
  8. OPAMOX [Concomitant]
     Active Substance: OXAZEPAM
     Indication: PRODUCT USED FOR UNKNOWN INDICATION
     Dosage: 15 MG, UNK
     Route: 065
  9. LAPENAX [Suspect]
     Active Substance: CLOZAPINE
     Dosage: 1 DF, QD (THIRD TRIMESTER EXPOSURE)
     Route: 065
     Dates: start: 20180711
  10. PERATSIN [Concomitant]
     Active Substance: PERPHENAZINE
     Dosage: 2 DF, BID
  11. OLANZAPINE. [Suspect]
     Active Substance: OLANZAPINE
     Indication: PRODUCT USED FOR UNKNOWN INDICATION
     Dosage: UNK
     Route: 065
     Dates: start: 201807, end: 201807

REACTIONS (12)
  - Maternal exposure during pregnancy [Recovered/Resolved]
  - Mental impairment [Unknown]
  - Cardiac failure acute [Fatal]
  - Suicidal behaviour [Unknown]
  - Insomnia [Unknown]
  - Anxiety [Unknown]
  - Premature delivery [Unknown]
  - Cardiac function disturbance postoperative [Fatal]
  - Congestive cardiomyopathy [Fatal]
  - Therapeutic product effect incomplete [Unknown]
  - Off label use [Recovered/Resolved]
  - Cardiogenic shock [Fatal]
